FAERS Safety Report 13229059 (Version 1)
Quarter: 2017Q1

REPORT INFORMATION
  Report Type: Spontaneous
  Country: IR (occurrence: IR)
  Receive Date: 20170214
  Receipt Date: 20170214
  Transmission Date: 20170428
  Serious: Yes (Other)
  Sender: FDA-Public Use
  Company Number: IR-ENDO PHARMACEUTICALS INC-2017-000666

PATIENT

DRUGS (1)
  1. METRONIDAZOLE. [Suspect]
     Active Substance: METRONIDAZOLE
     Indication: HELICOBACTER INFECTION
     Dosage: UNK UNK, UNKNOWN
     Route: 065

REACTIONS (4)
  - Deafness bilateral [Recovered/Resolved]
  - Nervous system disorder [Recovering/Resolving]
  - Neurotoxicity [Recovering/Resolving]
  - Toxic encephalopathy [Recovering/Resolving]
